FAERS Safety Report 11402169 (Version 1)
Quarter: 2015Q3

REPORT INFORMATION
  Report Type: Spontaneous
  Country: US (occurrence: US)
  Receive Date: 20150821
  Receipt Date: 20150821
  Transmission Date: 20151125
  Serious: No
  Sender: FDA-Public Use
  Company Number: US-ROCHE-1352245

PATIENT
  Sex: Male

DRUGS (3)
  1. COPEGUS [Suspect]
     Active Substance: RIBAVIRIN
     Indication: CHRONIC HEPATITIS C
     Route: 065
     Dates: start: 20031114
  2. PEGINTRON [Concomitant]
     Active Substance: PEGINTERFERON ALFA-2B
     Route: 065
     Dates: start: 2005
  3. PEGASYS [Suspect]
     Active Substance: PEGINTERFERON ALFA-2A
     Indication: CHRONIC HEPATITIS C
     Route: 065
     Dates: start: 20031114

REACTIONS (5)
  - Fatigue [Unknown]
  - Malaise [Unknown]
  - Dizziness [Unknown]
  - Headache [Unknown]
  - Depression [Unknown]
